FAERS Safety Report 11653424 (Version 1)
Quarter: 2015Q4

REPORT INFORMATION
  Report Type: Other
  Country: US (occurrence: US)
  Receive Date: 20151022
  Receipt Date: 20151022
  Transmission Date: 20160304
  Serious: No
  Sender: FDA-Public Use
  Company Number: US-DEP_08108_2015

PATIENT
  Sex: Female
  Weight: 47.17 kg

DRUGS (9)
  1. ZYRTEC-D [Suspect]
     Active Substance: CETIRIZINE HYDROCHLORIDE\PSEUDOEPHEDRINE HYDROCHLORIDE
     Indication: MULTIPLE ALLERGIES
     Dosage: UNK
     Route: 048
  2. BACLOFEN. [Concomitant]
     Active Substance: BACLOFEN
     Indication: MUSCLE RELAXANT THERAPY
     Dosage: 40 MG, UNK
     Route: 048
  3. ZYRTEC [Suspect]
     Active Substance: CETIRIZINE HYDROCHLORIDE
     Indication: MULTIPLE ALLERGIES
     Dosage: UNK
     Route: 048
  4. ASTELIN [Concomitant]
     Active Substance: AZELASTINE HYDROCHLORIDE
     Indication: MULTIPLE ALLERGIES
     Dosage: UNK
     Route: 048
  5. LISINOPRIL. [Concomitant]
     Active Substance: LISINOPRIL
     Indication: PRODUCT USED FOR UNKNOWN INDICATION
     Dosage: 5 MG, UNK
     Route: 048
  6. NUCYNTA ER [Suspect]
     Active Substance: TAPENTADOL HYDROCHLORIDE
     Indication: PAIN
     Dosage: 200 MG, 2/DAY
     Route: 048
     Dates: start: 201111
  7. PROGESTERONE. [Concomitant]
     Active Substance: PROGESTERONE
     Indication: PRODUCT USED FOR UNKNOWN INDICATION
     Dosage: UNK
     Route: 061
  8. KLONOPIN [Concomitant]
     Active Substance: CLONAZEPAM
     Indication: PRODUCT USED FOR UNKNOWN INDICATION
     Dosage: UNK
     Route: 048
  9. MECLIZINE [Concomitant]
     Active Substance: MECLIZINE\MECLIZINE HYDROCHLORIDE
     Indication: INNER EAR DISORDER
     Dosage: UNK

REACTIONS (7)
  - Dysgeusia [Not Recovered/Not Resolved]
  - Impaired driving ability [Not Recovered/Not Resolved]
  - Hypersomnia [Not Recovered/Not Resolved]
  - Constipation [Not Recovered/Not Resolved]
  - Abdominal pain upper [Not Recovered/Not Resolved]
  - Abnormal loss of weight [Not Recovered/Not Resolved]
  - Vision blurred [Not Recovered/Not Resolved]
